FAERS Safety Report 9449714 (Version 1)
Quarter: 2013Q3

REPORT INFORMATION
  Report Type: Spontaneous
  Country: IN (occurrence: IN)
  Receive Date: 20130809
  Receipt Date: 20130809
  Transmission Date: 20140515
  Serious: Yes (Other)
  Sender: FDA-Public Use
  Company Number: IN-ACCORD-018801

PATIENT
  Age: 52 Year
  Sex: Female

DRUGS (1)
  1. DOCETAXEL [Suspect]
     Indication: BREAST CANCER FEMALE
     Route: 042

REACTIONS (1)
  - Inappropriate antidiuretic hormone secretion [Recovered/Resolved]
